FAERS Safety Report 7032178-8 (Version None)
Quarter: 2010Q4

REPORT INFORMATION
  Report Type: 
  Country: None (occurrence: None)
  Receive Date: 20101007
  Receipt Date: 20100928
  Transmission Date: 20110411
  Serious: Yes (Other)
  Sender: FDA-Public Use
  Company Number: US-NOVOPROD-312461

PATIENT
  Sex: Male
  Weight: 79.365 kg

DRUGS (5)
  1. NOVOLOG [Suspect]
     Indication: TYPE 1 DIABETES MELLITUS
     Dosage: UNKNOWN
     Route: 058
  2. NOVOLOG [Suspect]
     Dosage: UNKNOWN
     Route: 058
  3. ANALGESICS [Concomitant]
     Indication: SPINAL DISORDER
     Dosage: UNKNOWN
  4. XANAX [Concomitant]
     Indication: ANXIETY
  5. VICODIN [Concomitant]
     Indication: PRODUCT USED FOR UNKNOWN INDICATION

REACTIONS (3)
  - BLOOD GLUCOSE INCREASED [None]
  - DEHYDRATION [None]
  - HYPOGLYCAEMIA [None]
